FAERS Safety Report 5466613-3 (Version None)
Quarter: 2007Q3

REPORT INFORMATION
  Report Type: 
  Country: None (occurrence: None)
  Receive Date: 20070925
  Receipt Date: 20070914
  Transmission Date: 20080115
  Serious: Yes (Other)
  Sender: FDA-Public Use
  Company Number: PHHO2007JP14496

PATIENT
  Age: 62 Year
  Sex: Female
  Weight: 53 kg

DRUGS (11)
  1. DIOVAN [Suspect]
     Indication: HYPERTENSION
     Dosage: 80 MG, QD
     Route: 048
     Dates: start: 20070209, end: 20070312
  2. DOXAZOSIN MESYLATE [Concomitant]
     Indication: HYPERTENSION
  3. LIPITOR [Concomitant]
     Indication: HYPERCHOLESTEROLAEMIA
  4. LANSOPRAZOLE [Concomitant]
     Indication: GASTROINTESTINAL DISORDER
  5. ETIZOLAM [Concomitant]
  6. URSO 250 [Concomitant]
     Indication: GASTROINTESTINAL DISORDER
  7. MUCOSTA [Concomitant]
     Indication: GASTROINTESTINAL DISORDER
  8. LORCAM [Concomitant]
     Indication: NERVOUS SYSTEM DISORDER
  9. ALPRAZOLAM [Concomitant]
     Indication: GASTROINTESTINAL DISORDER
  10. LUPRAC [Concomitant]
     Indication: OEDEMA DUE TO CARDIAC DISEASE
  11. ZESULAN [Concomitant]
     Dates: start: 20031203

REACTIONS (3)
  - BLOOD PRESSURE DECREASED [None]
  - DIZZINESS [None]
  - FALL [None]
